FAERS Safety Report 9167814 (Version 1)
Quarter: 2013Q1

REPORT INFORMATION
  Report Type: Spontaneous
  Country: BR (occurrence: BR)
  Receive Date: 20130318
  Receipt Date: 20130318
  Transmission Date: 20140127
  Serious: Yes (Other)
  Sender: FDA-Public Use
  Company Number: PHHY2013BR025687

PATIENT
  Sex: Female

DRUGS (1)
  1. DIOVAN [Suspect]
     Indication: HYPERTENSION
     Dosage: TWICE DAILY IN THE MORNING AND AT NIGHT

REACTIONS (3)
  - Ovarian cancer [Recovering/Resolving]
  - Visual acuity reduced [Recovering/Resolving]
  - Intraocular pressure increased [Recovering/Resolving]
